FAERS Safety Report 7003635-5 (Version None)
Quarter: 2010Q3

REPORT INFORMATION
  Report Type: 
  Country: None (occurrence: None)
  Receive Date: 20100920
  Receipt Date: 20090901
  Transmission Date: 20110219
  Serious: No
  Sender: FDA-Public Use
  Company Number: US-WYE-H10332009

PATIENT
  Sex: Male
  Weight: 85.26 kg

DRUGS (7)
  1. PROTONIX [Suspect]
     Indication: PROPHYLAXIS AGAINST GASTROINTESTINAL ULCER
     Route: 048
     Dates: start: 20090201, end: 20090501
  2. ACETYLSALICYLIC ACID [Concomitant]
     Route: 048
     Dates: start: 20090201
  3. ROSUVASTATIN [Concomitant]
  4. QUINAPRIL [Concomitant]
  5. AMLODIPINE BESILATE [Concomitant]
  6. PLAVIX [Concomitant]
     Route: 048
     Dates: start: 20090201
  7. ATENOLOL [Concomitant]

REACTIONS (3)
  - BLEEDING TIME PROLONGED [None]
  - CONTUSION [None]
  - DIARRHOEA [None]
